FAERS Safety Report 9764145 (Version 1)
Quarter: 2013Q4

REPORT INFORMATION
  Report Type: Spontaneous
  Country: US (occurrence: US)
  Receive Date: 20131216
  Receipt Date: 20131216
  Transmission Date: 20140711
  Serious: No
  Sender: FDA-Public Use
  Company Number: US-BIOGENIDEC-2013BI116256

PATIENT
  Age: 65 Year
  Sex: Female

DRUGS (2)
  1. TECFIDERA [Suspect]
     Indication: MULTIPLE SCLEROSIS
     Dates: start: 20130604, end: 20131020
  2. AVONEX [Concomitant]
     Indication: MULTIPLE SCLEROSIS
     Route: 030

REACTIONS (11)
  - Musculoskeletal disorder [Unknown]
  - Hypoaesthesia [Unknown]
  - General symptom [Recovered/Resolved]
  - Cognitive disorder [Unknown]
  - Mental impairment [Unknown]
  - Aphasia [Unknown]
  - Visual impairment [Recovered/Resolved]
  - Diplopia [Recovered/Resolved]
  - Adverse event [Unknown]
  - Flushing [Unknown]
  - Burning sensation [Unknown]
